FAERS Safety Report 25851800 (Version 1)
Quarter: 2025Q3

REPORT INFORMATION
  Report Type: Spontaneous
  Country: RU (occurrence: RU)
  Receive Date: 20250926
  Receipt Date: 20250926
  Transmission Date: 20251021
  Serious: Yes (Other)
  Sender: RANBAXY
  Company Number: RU-SUN PHARMACEUTICAL INDUSTRIES LTD-2025R1-529042

PATIENT
  Age: 36 Year
  Weight: 80 kg

DRUGS (5)
  1. VANCOMYCIN [Suspect]
     Active Substance: VANCOMYCIN
     Indication: Pneumonia
     Dosage: 2 GRAM, QD
     Route: 065
  2. VANCOMYCIN [Suspect]
     Active Substance: VANCOMYCIN
     Indication: Endocarditis
  3. TEICOPLANIN [Suspect]
     Active Substance: TEICOPLANIN
     Indication: Antibiotic prophylaxis
     Dosage: 400 MILLIGRAM, QD
     Route: 065
  4. GENTAMICIN [Suspect]
     Active Substance: GENTAMICIN
     Indication: Pneumonia
     Dosage: 240 MILLIGRAM, QD
     Route: 065
  5. GENTAMICIN [Suspect]
     Active Substance: GENTAMICIN
     Indication: Endocarditis

REACTIONS (5)
  - Acute kidney injury [Unknown]
  - Pneumonia [Unknown]
  - Disease recurrence [Unknown]
  - Urticaria [Unknown]
  - Pyrexia [Unknown]
